FAERS Safety Report 21199026 (Version 1)
Quarter: 2022Q3

REPORT INFORMATION
  Report Type: Spontaneous
  Country: CN (occurrence: None)
  Receive Date: 20220811
  Receipt Date: 20220811
  Transmission Date: 20221027
  Serious: Yes (Other)
  Sender: FDA-Public Use
  Company Number: CN-ROCHE-3157205

PATIENT
  Age: 57 Year
  Sex: Male

DRUGS (10)
  1. MABTHERA [Suspect]
     Active Substance: RITUXIMAB
     Indication: Central nervous system lymphoma
     Dosage: 08-JUL-2021,30-JUL-2021,20-AUG-2021
     Route: 065
     Dates: start: 20210618
  2. METHOTREXATE [Concomitant]
     Active Substance: METHOTREXATE
     Indication: Central nervous system lymphoma
     Dosage: 18-JUN-2021,08-JUL-2021,30-JUL-2021,20-AUG-2021
  3. CYTARABINE [Concomitant]
     Active Substance: CYTARABINE
     Indication: Central nervous system lymphoma
     Dosage: 18-JUN-2021,08-JUL-2021,30-JUL-2021,20-AUG-2021
  4. THIOTEPA [Concomitant]
     Active Substance: THIOTEPA
     Indication: Central nervous system lymphoma
     Dosage: 18-JUN-2021,08-JUL-2021,30-JUL-2021,20-AUG-2021
     Route: 037
  5. THIOTEPA [Concomitant]
     Active Substance: THIOTEPA
     Dates: start: 20211021
  6. BUSULFAN [Concomitant]
     Active Substance: BUSULFAN
     Indication: Central nervous system lymphoma
     Dates: start: 20211021
  7. CYCLOPHOSPHAMIDE [Concomitant]
     Active Substance: CYCLOPHOSPHAMIDE
     Indication: Central nervous system lymphoma
     Dates: start: 20211021
  8. MECAPEGFILGRASTIM [Concomitant]
     Active Substance: MECAPEGFILGRASTIM
     Indication: Central nervous system lymphoma
     Dates: start: 20211021
  9. ELTROMBOPAG [Concomitant]
     Active Substance: ELTROMBOPAG
     Indication: Central nervous system lymphoma
     Dates: start: 20211021
  10. ZANUBRUTINIB [Concomitant]
     Active Substance: ZANUBRUTINIB
     Indication: Central nervous system lymphoma

REACTIONS (2)
  - Pneumonia [Unknown]
  - Platelet count decreased [Unknown]
